FAERS Safety Report 8535859-X (Version None)
Quarter: 2012Q3

REPORT INFORMATION
  Report Type: 
  Country: None (occurrence: None)
  Receive Date: 20120718
  Receipt Date: 20120718
  Transmission Date: 20120928
  Serious: No
  Sender: FDA-Public Use
  Company Number: None

PATIENT
  Age: 75 Year
  Sex: Female
  Weight: 85.9 kg

DRUGS (2)
  1. LOVENOX [Suspect]
     Indication: THROMBOSIS PROPHYLAXIS
     Dosage: 120 MG DAILY SUBCUTANEOUSLY
     Route: 058
     Dates: start: 20120619, end: 20120624
  2. LOVENOX [Suspect]
     Indication: ATRIAL FIBRILLATION
     Dosage: 40 MG DAILY SUBCUTANEOUSLY
     Route: 058
     Dates: start: 20120626

REACTIONS (1)
  - PLATELET COUNT DECREASED [None]
